FAERS Safety Report 10562952 (Version 1)
Quarter: 2014Q4

REPORT INFORMATION
  Report Type: Spontaneous
  Country: US (occurrence: None)
  Receive Date: 20141103
  Receipt Date: 20141103
  Transmission Date: 20150529
  Serious: Yes (Hospitalization)
  Sender: FDA-Public Use
  Company Number: None

PATIENT
  Age: 22 Year
  Sex: Female
  Weight: 73.03 kg

DRUGS (3)
  1. NICOTROL [Suspect]
     Active Substance: NICOTINE
     Indication: SMOKING CESSATION THERAPY
     Dosage: 10 MG CARTRIDGE4-12DAILY
     Dates: start: 20140717
  2. METHADONE [Concomitant]
     Active Substance: METHADONE HYDROCHLORIDE
  3. PRE-NATAL VITAMINS [Concomitant]

REACTIONS (2)
  - Passive smoking [None]
  - Exposure during pregnancy [None]

NARRATIVE: CASE EVENT DATE: 20141015
